FAERS Safety Report 16737113 (Version 1)
Quarter: 2019Q3

REPORT INFORMATION
  Report Type: Spontaneous
  Country: DE (occurrence: DE)
  Receive Date: 20190823
  Receipt Date: 20190823
  Transmission Date: 20191005
  Serious: Yes (Hospitalization)
  Sender: FDA-Public Use
  Company Number: PHHY2019DE196896

PATIENT
  Age: 87 Year
  Sex: Female

DRUGS (1)
  1. LETROZOLE 1A PHARMA [Suspect]
     Active Substance: LETROZOLE
     Indication: BREAST CANCER
     Dosage: UNK
     Route: 065
     Dates: start: 201907

REACTIONS (3)
  - Dizziness [Unknown]
  - Eye swelling [Unknown]
  - Fall [Unknown]

NARRATIVE: CASE EVENT DATE: 20190818
